FAERS Safety Report 5304804-2 (Version None)
Quarter: 2007Q2

REPORT INFORMATION
  Report Type: 
  Country: None (occurrence: None)
  Receive Date: 20070423
  Receipt Date: 20070410
  Transmission Date: 20071010
  Serious: Yes (Other)
  Sender: FDA-Public Use
  Company Number: US-ELI_LILLY_AND_COMPANY-US200704003819

PATIENT
  Sex: Male

DRUGS (2)
  1. STRATTERA [Suspect]
     Dosage: 10 MG, UNK
     Route: 048
     Dates: start: 20070301, end: 20070328
  2. STRATTERA [Suspect]
     Dosage: 18 MG, UNK
     Route: 048
     Dates: start: 20070329, end: 20070409

REACTIONS (1)
  - INTENTIONAL SELF-INJURY [None]
